FAERS Safety Report 20927179 (Version 4)
Quarter: 2022Q3

REPORT INFORMATION
  Report Type: Report from Study
  Country: CO (occurrence: CO)
  Receive Date: 20220607
  Receipt Date: 20220930
  Transmission Date: 20221026
  Serious: Yes (Other)
  Sender: FDA-Public Use
  Company Number: CO-ALLERGAN-2217983US

PATIENT
  Sex: Female
  Weight: 69 kg

DRUGS (1)
  1. BOTULINUM TOXIN TYPE A [Suspect]
     Active Substance: BOTULINUM TOXIN TYPE A
     Indication: Migraine
     Dosage: 400 UNITS, SINGLE
     Route: 030
     Dates: start: 20220326, end: 20220326

REACTIONS (14)
  - Hemiplegia [Not Recovered/Not Resolved]
  - Blindness [Not Recovered/Not Resolved]
  - Seizure [Not Recovered/Not Resolved]
  - Ligament sprain [Not Recovered/Not Resolved]
  - Blepharospasm [Not Recovered/Not Resolved]
  - Feeling abnormal [Not Recovered/Not Resolved]
  - Mastication disorder [Not Recovered/Not Resolved]
  - Headache [Not Recovered/Not Resolved]
  - Eyelid ptosis [Not Recovered/Not Resolved]
  - Hypoaesthesia [Not Recovered/Not Resolved]
  - Nausea [Not Recovered/Not Resolved]
  - Dizziness [Not Recovered/Not Resolved]
  - Vision blurred [Not Recovered/Not Resolved]
  - Malaise [Not Recovered/Not Resolved]

NARRATIVE: CASE EVENT DATE: 20220501
